FAERS Safety Report 16771588 (Version 1)
Quarter: 2019Q3

REPORT INFORMATION
  Report Type: Spontaneous
  Country: US (occurrence: US)
  Receive Date: 20190904
  Receipt Date: 20190904
  Transmission Date: 20191005
  Serious: No
  Sender: FDA-Public Use
  Company Number: US-PFIZER INC-2019381288

PATIENT
  Age: 74 Year
  Sex: Male

DRUGS (1)
  1. NITROGLYCERIN. [Suspect]
     Active Substance: NITROGLYCERIN
     Indication: ANGINA PECTORIS
     Dosage: 0.4 MG, AS NEEDED (AT ONSET OF CHEST PAIN OR COULD REPEAT IT EVERY 5 MIN UPTO THREE TIMES)
     Route: 060

REACTIONS (1)
  - Drug ineffective [Unknown]
